FAERS Safety Report 24756989 (Version 1)
Quarter: 2024Q4

REPORT INFORMATION
  Report Type: Spontaneous
  Country: US (occurrence: US)
  Receive Date: 20241220
  Receipt Date: 20241220
  Transmission Date: 20250114
  Serious: No
  Sender: TELIX PHARMACEUTICALS
  Company Number: US-TLX-2024000210

PATIENT
  Age: 47 Year
  Sex: Male
  Weight: 183.71 kg

DRUGS (1)
  1. GALLIUM GA-68 GOZETOTIDE [Suspect]
     Active Substance: GALLIUM GA-68 GOZETOTIDE
     Indication: Imaging procedure
     Dosage: 5.2MCI DISPENSED
     Route: 042
     Dates: start: 20241106, end: 20241106

REACTIONS (2)
  - Hyperhidrosis [Recovered/Resolved]
  - Nausea [Recovered/Resolved]

NARRATIVE: CASE EVENT DATE: 20241106
